FAERS Safety Report 6237703-2 (Version None)
Quarter: 2009Q2

REPORT INFORMATION
  Report Type: 
  Country: None (occurrence: None)
  Receive Date: 20090616
  Receipt Date: 20090608
  Transmission Date: 20091009
  Serious: Yes (Hospitalization)
  Sender: FDA-Public Use
  Company Number: 2009SP001468

PATIENT
  Age: 56 Year
  Sex: Male
  Weight: 97.5 kg

DRUGS (8)
  1. LUNESTA [Suspect]
     Indication: INSOMNIA
     Dosage: 1 MG;HS;ORAL; 2 MG;HS;ORAL; 3 MG;HS;ORAL; 3 MG; PRN; ORAL
     Route: 048
     Dates: start: 20050101
  2. B COMPLEX /00212701/ [Concomitant]
  3. GARLIC /01570501/ [Concomitant]
  4. MULTI-VITAMINS [Concomitant]
  5. OMEGA [Concomitant]
  6. HERBAL PREPARATION [Concomitant]
  7. DIPHENHYDRAMINE HYDROCHLORIDE [Concomitant]
  8. PREV MEDS [Concomitant]

REACTIONS (5)
  - COLONIC POLYP [None]
  - FALL [None]
  - FATIGUE [None]
  - INTUSSUSCEPTION [None]
  - MIDDLE INSOMNIA [None]
